FAERS Safety Report 18724738 (Version 1)
Quarter: 2021Q1

REPORT INFORMATION
  Report Type: Spontaneous
  Country: CN (occurrence: CN)
  Receive Date: 20210111
  Receipt Date: 20210111
  Transmission Date: 20210419
  Serious: Yes (Hospitalization)
  Sender: FDA-Public Use
  Company Number: CN-PFIZER INC-2021006085

PATIENT
  Age: 76 Year
  Sex: Male
  Weight: 55 kg

DRUGS (3)
  1. SOLU?MEDROL [Suspect]
     Active Substance: METHYLPREDNISOLONE SODIUM SUCCINATE
     Indication: INTERSTITIAL LUNG DISEASE
     Dosage: 40 MG, 3X/DAY
     Route: 041
     Dates: start: 20201220, end: 20201222
  2. PIPERACILLIN AND TAZOBACTAM [Concomitant]
     Active Substance: PIPERACILLIN SODIUM\TAZOBACTAM SODIUM
     Indication: INTERSTITIAL LUNG DISEASE
     Dosage: 4.5 G, 3X/DAY
     Route: 041
     Dates: start: 20201220, end: 20210104
  3. SOLU?MEDROL [Suspect]
     Active Substance: METHYLPREDNISOLONE SODIUM SUCCINATE
     Dosage: 50 MG, 2X/DAY
     Route: 041
     Dates: start: 20201222, end: 20201229

REACTIONS (4)
  - Oral candidiasis [Recovering/Resolving]
  - Mouth ulceration [Recovering/Resolving]
  - Leukoplakia oral [Recovering/Resolving]
  - Off label use [Unknown]

NARRATIVE: CASE EVENT DATE: 20201220
